FAERS Safety Report 19858883 (Version 1)
Quarter: 2021Q3

REPORT INFORMATION
  Report Type: Other
  Country: BR (occurrence: BR)
  Receive Date: 20210921
  Receipt Date: 20210921
  Transmission Date: 20211014
  Serious: Yes (Other)
  Sender: FDA-Public Use
  Company Number: BR-ROCHE-2913486

PATIENT
  Age: 33 Year
  Sex: Female

DRUGS (4)
  1. XOLAIR [Suspect]
     Active Substance: OMALIZUMAB
     Indication: URTICARIA CHRONIC
     Dosage: UNK
     Route: 065
     Dates: start: 20190809
  2. XOLAIR [Suspect]
     Active Substance: OMALIZUMAB
     Indication: URTICARIA
     Dosage: 300 MG
     Route: 065
     Dates: start: 2019
  3. XOLAIR [Suspect]
     Active Substance: OMALIZUMAB
     Dosage: UNK
     Route: 065
     Dates: start: 20200210
  4. XOLAIR [Suspect]
     Active Substance: OMALIZUMAB
     Dosage: UNK
     Route: 065
     Dates: start: 20191210

REACTIONS (23)
  - Pruritus [Not Recovered/Not Resolved]
  - Fibromyalgia [Unknown]
  - Dental caries [Not Recovered/Not Resolved]
  - Drug ineffective [Not Recovered/Not Resolved]
  - Extra dose administered [Unknown]
  - Immunodeficiency [Not Recovered/Not Resolved]
  - Pain in extremity [Unknown]
  - Myalgia [Unknown]
  - Asthenia [Not Recovered/Not Resolved]
  - Arthralgia [Recovered/Resolved]
  - Headache [Recovered/Resolved]
  - Pain in jaw [Recovered/Resolved]
  - Pain [Unknown]
  - Hypersensitivity [Not Recovered/Not Resolved]
  - Pain of skin [Not Recovered/Not Resolved]
  - Noninfective gingivitis [Not Recovered/Not Resolved]
  - Wrong technique in product usage process [Unknown]
  - Incorrect dose administered [Unknown]
  - Abdominal pain [Unknown]
  - Mobility decreased [Not Recovered/Not Resolved]
  - Fatigue [Not Recovered/Not Resolved]
  - Feeling abnormal [Not Recovered/Not Resolved]
  - Urticaria [Not Recovered/Not Resolved]

NARRATIVE: CASE EVENT DATE: 2019
